FAERS Safety Report 7386090-5 (Version None)
Quarter: 2011Q1

REPORT INFORMATION
  Report Type: 
  Country: None (occurrence: None)
  Receive Date: 20110317
  Receipt Date: 20110112
  Transmission Date: 20110831
  Serious: Yes (Death)
  Sender: FDA-Public Use
  Company Number: OMX-2010-00133

PATIENT
  Age: 49 Year
  Sex: Female
  Weight: 53.978 kg

DRUGS (3)
  1. HEPARIN [Concomitant]
  2. EVICEL [Suspect]
     Indication: HAEMOSTASIS
     Dosage: EVICEL APPLIED BY DRIPPING
     Dates: start: 20101110, end: 20101110
  3. APPLICATOR [Concomitant]

REACTIONS (3)
  - CARDIAC ARREST [None]
  - PULSE ABSENT [None]
  - BLOOD PRESSURE DECREASED [None]
